FAERS Safety Report 6010589-7 (Version None)
Quarter: 2008Q4

REPORT INFORMATION
  Report Type: 
  Country: None (occurrence: None)
  Receive Date: 20081218
  Receipt Date: 20081212
  Transmission Date: 20090506
  Serious: Yes (Other)
  Sender: FDA-Public Use
  Company Number: US-BIOGENIDEC-2008BI030404

PATIENT
  Age: 36 Year
  Sex: Male

DRUGS (3)
  1. TYSABRI [Suspect]
     Indication: MULTIPLE SCLEROSIS
     Route: 042
     Dates: start: 20041201, end: 20050101
  2. TYSABRI [Suspect]
     Route: 042
     Dates: start: 20070427, end: 20071109
  3. TYSABRI [Suspect]
     Route: 042
     Dates: start: 20080815

REACTIONS (4)
  - ARTHROPOD BITE [None]
  - CENTRAL NERVOUS SYSTEM LESION [None]
  - ENCEPHALITIS [None]
  - OPTIC NEURITIS [None]
